FAERS Safety Report 4479751-9 (Version None)
Quarter: 2004Q4

REPORT INFORMATION
  Report Type: 
  Country: None (occurrence: None)
  Receive Date: 20041019
  Receipt Date: 20040928
  Transmission Date: 20050328
  Serious: No
  Sender: FDA-Public Use
  Company Number: 2004AL000400

PATIENT
  Sex: Male

DRUGS (1)
  1. IPRATROPIUM BROMIDE [Suspect]

REACTIONS (4)
  - CARDIAC ARREST [None]
  - COLLAPSE OF LUNG [None]
  - COMA [None]
  - HOSPITALISATION [None]
